FAERS Safety Report 6766902-6 (Version None)
Quarter: 2010Q2

REPORT INFORMATION
  Report Type: 
  Country: None (occurrence: None)
  Receive Date: 20100611
  Receipt Date: 20100531
  Transmission Date: 20101027
  Serious: Yes (Hospitalization, Other)
  Sender: FDA-Public Use
  Company Number: US-GENENTECH-302682

PATIENT
  Age: 37 Year
  Sex: Female

DRUGS (2)
  1. RITUXIMAB [Suspect]
     Indication: EXTRANODAL MARGINAL ZONE B-CELL LYMPHOMA (MALT TYPE)
     Dosage: UNK
     Route: 042
  2. RITUXIMAB [Suspect]
     Dosage: UNK UNK, Q3M
     Route: 042

REACTIONS (2)
  - NEOPLASM MALIGNANT [None]
  - SERUM SICKNESS [None]
